FAERS Safety Report 6689958-8 (Version None)
Quarter: 2010Q2

REPORT INFORMATION
  Report Type: 
  Country: None (occurrence: None)
  Receive Date: 20100421
  Receipt Date: 20100413
  Transmission Date: 20101027
  Serious: Yes (Other)
  Sender: FDA-Public Use
  Company Number: US-PFIZER INC-2010046989

PATIENT
  Sex: Female
  Weight: 55 kg

DRUGS (12)
  1. CELEBREX [Suspect]
     Indication: PAIN IN EXTREMITY
     Dosage: 200 MG, 1X/DAY
     Route: 048
     Dates: start: 20100401, end: 20100412
  2. SYNTHROID [Concomitant]
     Dosage: UNK
  3. PLAVIX [Concomitant]
     Dosage: UNK
  4. MULTI-VITAMINS [Concomitant]
     Dosage: UNK
  5. ACETYLSALICYLIC ACID [Concomitant]
     Dosage: 325 MG, 1X/DAY
  6. FISH OIL [Concomitant]
     Dosage: UNK
  7. BENICAR [Concomitant]
     Dosage: UNK
  8. LIPITOR [Concomitant]
     Dosage: UNK
  9. FOSAMAX [Concomitant]
     Dosage: UNK
  10. NEBIVOLOL [Concomitant]
     Dosage: UNK
  11. CITRACAL + D [Concomitant]
     Dosage: UNK
  12. TYLENOL-500 [Concomitant]
     Dosage: UNK

REACTIONS (3)
  - DIARRHOEA [None]
  - FAECAL INCONTINENCE [None]
  - WEIGHT INCREASED [None]
